FAERS Safety Report 7981051-7 (Version None)
Quarter: 2011Q4

REPORT INFORMATION
  Report Type: 
  Country: None (occurrence: None)
  Receive Date: 20111215
  Receipt Date: 20111212
  Transmission Date: 20120403
  Serious: No
  Sender: FDA-Public Use
  Company Number: US-BIOGENIDEC-2011BI047089

PATIENT
  Sex: Female

DRUGS (3)
  1. ZANTAC [Concomitant]
  2. ZOLOFT [Concomitant]
  3. TYSABRI [Suspect]
     Indication: MULTIPLE SCLEROSIS
     Route: 042
     Dates: start: 20101022

REACTIONS (4)
  - PAIN IN EXTREMITY [None]
  - MUSCLE SPASMS [None]
  - FATIGUE [None]
  - SENSATION OF HEAVINESS [None]
